FAERS Safety Report 7773839-2 (Version None)
Quarter: 2011Q3

REPORT INFORMATION
  Report Type: 
  Country: None (occurrence: None)
  Receive Date: 20110923
  Receipt Date: 20110913
  Transmission Date: 20111222
  Serious: Yes (Other)
  Sender: FDA-Public Use
  Company Number: US-JNJFOC-20110905827

PATIENT
  Sex: Female
  Weight: 65.77 kg

DRUGS (1)
  1. SIMPONI [Suspect]
     Indication: RHEUMATOID ARTHRITIS
     Route: 058
     Dates: start: 20100101

REACTIONS (4)
  - DEVICE MISUSE [None]
  - CEREBROVASCULAR ACCIDENT [None]
  - DRUG DOSE OMISSION [None]
  - DEVICE FAILURE [None]
